FAERS Safety Report 9010327 (Version 1)
Quarter: 2013Q1

REPORT INFORMATION
  Report Type: Spontaneous
  Country: US (occurrence: US)
  Receive Date: 20130110
  Receipt Date: 20130110
  Transmission Date: 20140127
  Serious: Yes (Life-Threatening, Other)
  Sender: FDA-Public Use
  Company Number: US-009507513-0909USA03200

PATIENT
  Age: 29 Year
  Sex: Male
  Weight: 181.44 kg

DRUGS (1)
  1. SINGULAIR [Suspect]
     Indication: ASTHMA
     Dosage: 10 MG, QD
     Route: 048
     Dates: start: 20050808, end: 20051001

REACTIONS (2)
  - Depression [Unknown]
  - Crying [Unknown]
